FAERS Safety Report 9645711 (Version 1)
Quarter: 2013Q4

REPORT INFORMATION
  Report Type: Spontaneous
  Country: US (occurrence: US)
  Receive Date: 20131025
  Receipt Date: 20131025
  Transmission Date: 20140711
  Serious: No
  Sender: FDA-Public Use
  Company Number: US-009507513-1310USA011780

PATIENT
  Sex: Male

DRUGS (1)
  1. TINACTIN SPRAY POWDER [Suspect]
     Indication: TINEA PEDIS
     Dosage: 1 DF, ONCE
     Route: 061
     Dates: start: 20131009

REACTIONS (1)
  - Blood glucose increased [Recovering/Resolving]
